FAERS Safety Report 7560360-X (Version None)
Quarter: 2011Q2

REPORT INFORMATION
  Report Type: 
  Country: None (occurrence: None)
  Receive Date: 20110621
  Receipt Date: 20110609
  Transmission Date: 20111010
  Serious: Yes (Hospitalization, Other)
  Sender: FDA-Public Use
  Company Number: ES-ELI_LILLY_AND_COMPANY-ES201105006526

PATIENT
  Sex: Female
  Weight: 58 kg

DRUGS (4)
  1. FORTEO [Suspect]
     Indication: OSTEOPOROSIS
     Dosage: 20 UG, QD
     Route: 058
     Dates: start: 20110427, end: 20110509
  2. ASPIRIN [Concomitant]
     Indication: CARDIAC DISORDER
     Dosage: 300 MG, QD
     Route: 048
  3. SIMVASTATINA [Concomitant]
     Indication: BLOOD CHOLESTEROL
     Dosage: UNK, QD
     Route: 048
  4. OMEPRAZOLE [Concomitant]
     Indication: PROPHYLAXIS
     Dosage: UNK, QD
     Route: 048

REACTIONS (2)
  - BRONCHITIS [None]
  - PNEUMONIA [None]
